FAERS Safety Report 7335389-7 (Version None)
Quarter: 2011Q1

REPORT INFORMATION
  Report Type: 
  Country: None (occurrence: None)
  Receive Date: 20110228
  Receipt Date: 20101112
  Transmission Date: 20110831
  Serious: Yes (Other)
  Sender: FDA-Public Use
  Company Number: US-000206

PATIENT
  Age: 30 Year
  Sex: Female

DRUGS (1)
  1. TRAZODONE HYDROCHLORIDE [Suspect]
     Indication: PRODUCT USED FOR UNKNOWN INDICATION
     Dosage: (150 MG QD ORAL)
     Route: 048
     Dates: start: 20100101, end: 20100101

REACTIONS (4)
  - HYPERSENSITIVITY [None]
  - EYE PRURITUS [None]
  - EYELID OEDEMA [None]
  - PRURITUS GENERALISED [None]
